FAERS Safety Report 20582551 (Version 1)
Quarter: 2022Q1

REPORT INFORMATION
  Report Type: Spontaneous
  Country: US (occurrence: US)
  Receive Date: 20220311
  Receipt Date: 20220311
  Transmission Date: 20220423
  Serious: Yes (Other)
  Sender: FDA-Public Use
  Company Number: US-009507513-2203USA002433

PATIENT
  Age: 55 Year
  Sex: Male
  Weight: 83.265 kg

DRUGS (3)
  1. SIVEXTRO [Suspect]
     Active Substance: TEDIZOLID PHOSPHATE
     Dosage: UNK
     Route: 048
     Dates: end: 20210528
  2. NUZYRA [Suspect]
     Active Substance: OMADACYCLINE
     Indication: Mycobacterium abscessus infection
     Dosage: 300 MILLIGRAM, 1X/DAY
     Route: 048
     Dates: start: 20210105, end: 20210528
  3. BEDAQUILINE [Suspect]
     Active Substance: BEDAQUILINE
     Dosage: UNK
     Dates: end: 20210521

REACTIONS (2)
  - Alanine aminotransferase increased [Recovered/Resolved]
  - Aspartate aminotransferase increased [Recovered/Resolved]

NARRATIVE: CASE EVENT DATE: 20210520
